FAERS Safety Report 6714162-4 (Version None)
Quarter: 2010Q2

REPORT INFORMATION
  Report Type: 
  Country: None (occurrence: None)
  Receive Date: 20100506
  Receipt Date: 20100426
  Transmission Date: 20101027
  Serious: Yes (Other)
  Sender: FDA-Public Use
  Company Number: US-BRISTOL-MYERS SQUIBB COMPANY-14404487

PATIENT
  Age: 52 Year
  Sex: Male

DRUGS (8)
  1. ABATACEPT [Suspect]
     Indication: RHEUMATOID ARTHRITIS
     Dosage: 05JUN2008-24OCT08: 125MG SQ 12SEP03-08MAY08:1000MG IV 24APR03-11SEP03:1000MGIV
     Route: 058
     Dates: start: 20030424, end: 20081024
  2. DIOVAN HCT [Concomitant]
     Dates: start: 20080218
  3. NEXIUM [Concomitant]
     Dates: start: 20041120
  4. NAPROSYN [Concomitant]
     Dates: start: 20060909
  5. MULTI-VITAMIN [Concomitant]
  6. ASCORBIC ACID [Concomitant]
  7. LOVAZA [Concomitant]
  8. ACETAMINOPHEN [Concomitant]

REACTIONS (1)
  - SARCOIDOSIS [None]
